FAERS Safety Report 8493440-5 (Version None)
Quarter: 2012Q3

REPORT INFORMATION
  Report Type: 
  Country: None (occurrence: None)
  Receive Date: 20120706
  Receipt Date: 20120629
  Transmission Date: 20120928
  Serious: Yes (Hospitalization, Other)
  Sender: FDA-Public Use
  Company Number: US-BRISTOL-MYERS SQUIBB COMPANY-16506925

PATIENT
  Age: 70 Year
  Sex: Female

DRUGS (5)
  1. CARDIZEM LA [Concomitant]
     Indication: HYPERTENSION
     Dates: start: 20040101
  2. TOPROL-XL [Concomitant]
     Indication: HYPERTENSION
     Dates: start: 20040101
  3. FOSINOPRIL SODIUM [Concomitant]
     Indication: HYPERTENSION
     Dates: start: 20040101
  4. MDX-1106 [Suspect]
     Indication: MALIGNANT MELANOMA
     Route: 042
     Dates: start: 20120221
  5. IPILIMUMAB [Suspect]
     Indication: MALIGNANT MELANOMA
     Route: 042
     Dates: start: 20120221

REACTIONS (3)
  - AMYLASE INCREASED [None]
  - HYPERTENSION [None]
  - LIPASE INCREASED [None]
